FAERS Safety Report 8860240 (Version 2)
Quarter: 2012Q4

REPORT INFORMATION
  Report Type: 
  Country: US (occurrence: US)
  Receive Date: 20121025
  Receipt Date: 20121113
  Transmission Date: 20130627
  Serious: Yes (Death)
  Sender: FDA-Public Use
  Company Number: PHEH2012US020867

PATIENT
  Sex: Female

DRUGS (7)
  1. RECLAST [Suspect]
     Indication: SENILE OSTEOPOROSIS
     Dosage: 5 mg once a yearly
     Route: 042
     Dates: start: 20120511
  2. CARBIDOPA W/LEVODOPA [Concomitant]
     Dosage: UNK UKN, UNK
  3. COREG [Concomitant]
     Dosage: UNK UKN, UNK
  4. IRON [Concomitant]
     Dosage: UNK UKN, UNK
  5. DABIGATRAN ETEXILATE [Concomitant]
     Dosage: UNK UKN, UNK
  6. K-DUR [Concomitant]
     Dosage: UNK UKN, UNK
  7. TRICOR [Concomitant]

REACTIONS (2)
  - Cardiac failure congestive [Fatal]
  - Pneumonia [Fatal]
